FAERS Safety Report 6867103-3 (Version None)
Quarter: 2010Q3

REPORT INFORMATION
  Report Type: 
  Country: None (occurrence: None)
  Receive Date: 20100722
  Receipt Date: 20100719
  Transmission Date: 20110219
  Serious: Yes (Death)
  Sender: FDA-Public Use
  Company Number: A0867423A

PATIENT
  Age: 67 Year
  Sex: Female
  Weight: 112.7 kg

DRUGS (10)
  1. PROMACTA [Suspect]
     Indication: IDIOPATHIC THROMBOCYTOPENIC PURPURA
     Dosage: 50MG PER DAY
     Route: 048
  2. LASIX [Concomitant]
  3. HYDROXYCHLOROQUINE [Concomitant]
  4. SPIRONOLACTONE [Concomitant]
  5. NEXIUM [Concomitant]
  6. HYDROXYZINE [Concomitant]
  7. AMITRIPTYLINE HYDROCHLORIDE [Concomitant]
  8. METFORMIN [Concomitant]
  9. CYMBALTA [Concomitant]
  10. NITROGLYCERIN [Concomitant]

REACTIONS (1)
  - DEATH [None]
